FAERS Safety Report 18139819 (Version 1)
Quarter: 2020Q3

REPORT INFORMATION
  Report Type: Spontaneous
  Country: US (occurrence: US)
  Receive Date: 20200812
  Receipt Date: 20200812
  Transmission Date: 20201103
  Serious: Yes (Death)
  Sender: FDA-Public Use
  Company Number: None

PATIENT
  Sex: Male

DRUGS (1)
  1. NEORAL [Suspect]
     Active Substance: CYCLOSPORINE
     Indication: LUNG TRANSPLANT
     Dosage: DOSAGE: 9 CAPS ?? 8 CAPS?          OTHER FREQUENCY:QAM ? QPM ;?
     Route: 048
     Dates: start: 20190201

REACTIONS (1)
  - Death [None]
